FAERS Safety Report 13121692 (Version 11)
Quarter: 2022Q1

REPORT INFORMATION
  Report Type: Spontaneous
  Country: US (occurrence: US)
  Receive Date: 20170117
  Receipt Date: 20220210
  Transmission Date: 20220423
  Serious: Yes (Other)
  Sender: FDA-Public Use
  Company Number: US-PFIZER INC-2017017192

PATIENT
  Age: 58 Year
  Sex: Male
  Weight: 122 kg

DRUGS (5)
  1. LYRICA [Suspect]
     Active Substance: PREGABALIN
     Indication: Neuropathy peripheral
     Dosage: 100 MG, TWICE A DAY (ONE PILL IN THE MORNING AND ONE IN THE EVENING)
     Route: 048
     Dates: start: 2015
  2. LYRICA [Suspect]
     Active Substance: PREGABALIN
     Dosage: 100 MG, TWICE A DAY (MAY TAKE UP TO 2 CAPSULES 2 TIMES A DAY)
  3. LYRICA [Suspect]
     Active Substance: PREGABALIN
     Dosage: 200 MG (2 CAPSULES OF 100 MG), IN THE MORNING AND IN THE EVENING
  4. LYRICA [Suspect]
     Active Substance: PREGABALIN
     Dosage: 500 MG, DAILY (2 CAPSULES IN THE MORNING AND 3 CAPSULES IN THE EVENING)
  5. LYRICA [Suspect]
     Active Substance: PREGABALIN
     Dosage: 500 MG, DAILY (100 MG, 2 CAPSULES EVERY MORNING, 3 CAPSULES EVERY EVENING)
     Dates: start: 20210629

REACTIONS (4)
  - Fall [Unknown]
  - Rotator cuff syndrome [Unknown]
  - Upper limb fracture [Unknown]
  - Diabetes mellitus [Unknown]

NARRATIVE: CASE EVENT DATE: 20150501
